FAERS Safety Report 13350056 (Version 1)
Quarter: 2017Q1

REPORT INFORMATION
  Report Type: Spontaneous
  Country: TR (occurrence: TR)
  Receive Date: 20170320
  Receipt Date: 20170320
  Transmission Date: 20170429
  Serious: Yes (Death, Other)
  Sender: FDA-Public Use
  Company Number: TR-JNJFOC-20170314555

PATIENT

DRUGS (16)
  1. METHOTREXATE. [Suspect]
     Active Substance: METHOTREXATE
     Indication: ACUTE LYMPHOCYTIC LEUKAEMIA
     Route: 065
  2. VINCRISTINE [Suspect]
     Active Substance: VINCRISTINE
     Indication: ACUTE LYMPHOCYTIC LEUKAEMIA
     Dosage: DAYS 1, 6, 8, 15, 22, 29
     Route: 065
  3. ASPARAGINASE [Suspect]
     Active Substance: ASPARAGINASE
     Indication: ACUTE LYMPHOCYTIC LEUKAEMIA
     Dosage: 25000 U/M2 DAY 6,??10000 IU/M2 DAYS 8, 11, 15, 18
     Route: 065
  4. DEXAMETHASONE. [Suspect]
     Active Substance: DEXAMETHASONE
     Indication: ACUTE LYMPHOCYTIC LEUKAEMIA
     Dosage: DAYS 1-5
     Route: 065
  5. VINDESINE [Suspect]
     Active Substance: VINDESINE
     Indication: ACUTE LYMPHOCYTIC LEUKAEMIA
     Dosage: DAYS 1-6
     Route: 065
  6. DOXORUBICIN HYDROCHLORIDE. [Suspect]
     Active Substance: DOXORUBICIN HYDROCHLORIDE
     Indication: ACUTE LYMPHOCYTIC LEUKAEMIA
     Dosage: DAY 5, DAYS 8, 15, 22, 29
     Route: 065
  7. MERCAPTOPURINE. [Suspect]
     Active Substance: MERCAPTOPURINE
     Indication: ACUTE LYMPHOCYTIC LEUKAEMIA
     Dosage: DAYS 1-56
     Route: 065
  8. CYTARABINE. [Suspect]
     Active Substance: CYTARABINE
     Indication: ACUTE LYMPHOCYTIC LEUKAEMIA
     Dosage: DAYS 38-41, 45-48
     Route: 065
  9. THIOGUANINE [Suspect]
     Active Substance: THIOGUANINE
     Indication: ACUTE LYMPHOCYTIC LEUKAEMIA
     Dosage: DAYS 36-49)
     Route: 065
  10. CYCLOPHOSPHAMIDE. [Suspect]
     Active Substance: CYCLOPHOSPHAMIDE
     Indication: ACUTE LYMPHOCYTIC LEUKAEMIA
     Dosage: DAYS 2-4
     Route: 065
  11. IFOSFAMIDE. [Suspect]
     Active Substance: IFOSFAMIDE
     Indication: ACUTE LYMPHOCYTIC LEUKAEMIA
     Dosage: DAYS 2-4
     Route: 065
  12. DEXAMETHASONE. [Suspect]
     Active Substance: DEXAMETHASONE
     Indication: ACUTE LYMPHOCYTIC LEUKAEMIA
     Dosage: DAYS 1-22
     Route: 065
  13. CYTARABINE. [Suspect]
     Active Substance: CYTARABINE
     Indication: ACUTE LYMPHOCYTIC LEUKAEMIA
     Dosage: DAYS 5
     Route: 065
  14. ETOPOSIDE. [Suspect]
     Active Substance: ETOPOSIDE
     Indication: ACUTE LYMPHOCYTIC LEUKAEMIA
     Dosage: DAYS 3-5, 5 DOSES 12 HOURS
     Route: 065
  15. CYCLOPHOSPHAMIDE. [Suspect]
     Active Substance: CYCLOPHOSPHAMIDE
     Indication: ACUTE LYMPHOCYTIC LEUKAEMIA
     Dosage: DAY 36
     Route: 065
  16. METHOTREXATE. [Suspect]
     Active Substance: METHOTREXATE
     Indication: ACUTE LYMPHOCYTIC LEUKAEMIA
     Route: 065

REACTIONS (32)
  - Pancreatitis [Unknown]
  - Hypocalcaemia [Unknown]
  - Congestive cardiomyopathy [Recovered/Resolved]
  - Neuropathy peripheral [Unknown]
  - Hyperglycaemia [Unknown]
  - Generalised tonic-clonic seizure [Unknown]
  - Polycythaemia [Unknown]
  - Inappropriate antidiuretic hormone secretion [Unknown]
  - Product use issue [Unknown]
  - Pneumonia [Unknown]
  - Stomatitis [Unknown]
  - Tremor [Recovered/Resolved]
  - Osteonecrosis [Unknown]
  - Nail discolouration [Unknown]
  - Upper gastrointestinal haemorrhage [Fatal]
  - Varicella zoster virus infection [Unknown]
  - Pulmonary embolism [Fatal]
  - Soft tissue infection [Unknown]
  - Thrombophlebitis [Unknown]
  - Depression [Unknown]
  - Colitis [Unknown]
  - Posterior reversible encephalopathy syndrome [Unknown]
  - Cholecystitis [Unknown]
  - Retroperitoneal haemorrhage [Fatal]
  - Hepatitis [Unknown]
  - Hypertension [Unknown]
  - Renal tubular disorder [Unknown]
  - Sepsis [Fatal]
  - Thrombocytosis [Fatal]
  - Neutropenic colitis [Unknown]
  - Eyelid ptosis [Unknown]
  - Off label use [Unknown]
